FAERS Safety Report 17311639 (Version 1)
Quarter: 2020Q1

REPORT INFORMATION
  Report Type: Spontaneous
  Country: US (occurrence: US)
  Receive Date: 20200123
  Receipt Date: 20200123
  Transmission Date: 20200409
  Serious: Yes (Other)
  Sender: FDA-Public Use
  Company Number: US-ROCHE-2264169

PATIENT
  Age: 4 Year
  Sex: Male

DRUGS (8)
  1. CYCLOSPORINE. [Suspect]
     Active Substance: CYCLOSPORINE
     Indication: IMMUNE THROMBOCYTOPENIC PURPURA
     Route: 065
  2. PREDNISONE. [Suspect]
     Active Substance: PREDNISONE
     Indication: AUTOIMMUNE HAEMOLYTIC ANAEMIA
     Route: 065
  3. MERCAPTOPURINE. [Concomitant]
     Active Substance: MERCAPTOPURINE
  4. TACROLIMUS. [Suspect]
     Active Substance: TACROLIMUS
     Indication: IMMUNE THROMBOCYTOPENIC PURPURA
     Route: 065
  5. PREDNISONE. [Suspect]
     Active Substance: PREDNISONE
     Indication: COLITIS
  6. SIROLIMUS. [Suspect]
     Active Substance: SIROLIMUS
     Indication: IMMUNE THROMBOCYTOPENIC PURPURA
     Route: 065
  7. RITUXIMAB. [Suspect]
     Active Substance: RITUXIMAB
     Indication: IMMUNE THROMBOCYTOPENIC PURPURA
     Route: 065
  8. MYCOPHENOLATE MOFETIL. [Suspect]
     Active Substance: MYCOPHENOLATE MOFETIL
     Indication: IMMUNE THROMBOCYTOPENIC PURPURA
     Route: 065

REACTIONS (1)
  - Cytomegalovirus infection [Recovering/Resolving]
